FAERS Safety Report 14940465 (Version 1)
Quarter: 2018Q2

REPORT INFORMATION
  Report Type: Spontaneous
  Country: TR (occurrence: TR)
  Receive Date: 20180525
  Receipt Date: 20180525
  Transmission Date: 20180711
  Serious: Yes (Other)
  Sender: FDA-Public Use
  Company Number: TR-009507513-1805TUR010124

PATIENT
  Age: 50 Year
  Sex: Female

DRUGS (5)
  1. KYTRIL [Concomitant]
     Active Substance: GRANISETRON HYDROCHLORIDE
  2. TEGRETOL [Concomitant]
     Active Substance: CARBAMAZEPINE
  3. TEMODAL [Suspect]
     Active Substance: TEMOZOLOMIDE
     Indication: ANAPLASTIC ASTROCYTOMA
     Dosage: UNK
     Route: 048
     Dates: start: 201605
  4. KEPPRA [Concomitant]
     Active Substance: LEVETIRACETAM
  5. TEMODAL [Suspect]
     Active Substance: TEMOZOLOMIDE
     Dosage: UNK
     Route: 048
     Dates: start: 201805

REACTIONS (3)
  - Altered visual depth perception [Not Recovered/Not Resolved]
  - Gait disturbance [Unknown]
  - Diplopia [Not Recovered/Not Resolved]

NARRATIVE: CASE EVENT DATE: 20180507
